FAERS Safety Report 9680302 (Version 1)
Quarter: 2013Q4

REPORT INFORMATION
  Report Type: Spontaneous
  Country: AT (occurrence: AT)
  Receive Date: 20131111
  Receipt Date: 20131111
  Transmission Date: 20140711
  Serious: Yes (Other)
  Sender: FDA-Public Use
  Company Number: AT-BRISTOL-MYERS SQUIBB COMPANY-19734219

PATIENT
  Age: 67 Year
  Sex: Male

DRUGS (2)
  1. METFORMIN HCL [Suspect]
     Dosage: 1 DF = 850 UNITS NOS
  2. INSULIN [Suspect]
     Dosage: 1 DF = 60 TO 100 UNITS

REACTIONS (1)
  - Benign neoplasm of bladder [Unknown]
